FAERS Safety Report 7781217-5 (Version None)
Quarter: 2011Q3

REPORT INFORMATION
  Report Type: 
  Country: None (occurrence: None)
  Receive Date: 20110927
  Receipt Date: 20110920
  Transmission Date: 20111222
  Serious: Yes (Hospitalization)
  Sender: FDA-Public Use
  Company Number: FR-GLAXOSMITHKLINE-B0749650A

PATIENT
  Sex: Female

DRUGS (1)
  1. ALLI [Suspect]
     Indication: WEIGHT DECREASED
     Route: 065

REACTIONS (5)
  - MYALGIA [None]
  - LIVER FUNCTION TEST ABNORMAL [None]
  - HEPATITIS VIRAL [None]
  - FATIGUE [None]
  - CYTOLYTIC HEPATITIS [None]
